FAERS Safety Report 8568997 (Version 3)
Quarter: 2013Q1

REPORT INFORMATION
  Report Type: Report from Study
  Country: US (occurrence: US)
  Receive Date: 20120518
  Receipt Date: 20130123
  Transmission Date: 20140127
  Serious: Yes (Death, Life-Threatening, Hospitalization)
  Sender: FDA-Public Use
  Company Number: US-BAXTER-2012BAX005643

PATIENT
  Age: 52 Year
  Sex: Male
  Weight: 90.4 kg

DRUGS (17)
  1. NAMENDA [Concomitant]
     Indication: DEMENTIA ALZHEIMER^S TYPE
     Route: 048
     Dates: start: 20090501, end: 20120201
  2. NAMENDA [Concomitant]
     Route: 048
     Dates: start: 20120223, end: 20120301
  3. NAMENDA [Concomitant]
     Route: 048
     Dates: start: 20120302
  4. COMPLEX CURCUMIN [Concomitant]
     Indication: SUPPLEMENTATION THERAPY
     Route: 048
     Dates: start: 20100414
  5. VITAMIN D3 [Concomitant]
     Indication: SUPPLEMENTATION THERAPY
     Route: 048
     Dates: start: 20100414
  6. VITAMIN E [Concomitant]
     Indication: SUPPLEMENTATION THERAPY
     Route: 048
     Dates: start: 20090615
  7. B-100 COMPLEX [Concomitant]
     Indication: SUPPLEMENTATION THERAPY
     Route: 048
     Dates: start: 20090615
  8. MULTIVITAMIN [Concomitant]
     Indication: SUPPLEMENTATION THERAPY
     Route: 048
     Dates: start: 20090615
  9. SEROQUEL [Concomitant]
     Indication: ANXIETY
     Route: 048
     Dates: start: 20110629, end: 20110724
  10. SEROQUEL [Concomitant]
     Route: 048
     Dates: start: 20110725, end: 20111105
  11. SEROQUEL [Concomitant]
     Route: 048
     Dates: start: 20111106, end: 20111119
  12. SEROQUEL [Concomitant]
     Route: 048
     Dates: start: 20111126
  13. GALANTAMINE ER [Concomitant]
     Indication: DEMENTIA ALZHEIMER^S TYPE
     Route: 048
     Dates: start: 20100614
  14. NUEDEXTA [Concomitant]
     Indication: ANXIETY
     Route: 048
     Dates: start: 20120131, end: 20120207
  15. NUEDEXTA [Concomitant]
     Dosage: 20/10 MG
     Route: 048
     Dates: start: 20120207
  16. GAMMAGARD LIQUID [Suspect]
     Indication: DEMENTIA ALZHEIMER^S TYPE
     Route: 042
     Dates: start: 20111006, end: 20120111
  17. GAMMAGARD LIQUID [Suspect]
     Route: 042
     Dates: start: 20101104, end: 20110922

REACTIONS (5)
  - Pulmonary embolism [Fatal]
  - Dehydration [Recovered/Resolved]
  - Atrial fibrillation [Recovered/Resolved]
  - Deep vein thrombosis [Unknown]
  - Syncope [Recovered/Resolved]
